FAERS Safety Report 5079116-5 (Version None)
Quarter: 2006Q3

REPORT INFORMATION
  Report Type: 
  Country: None (occurrence: None)
  Receive Date: 20060720
  Receipt Date: 20060411
  Transmission Date: 20061208
  Serious: Yes (Other)
  Sender: FDA-Public Use
  Company Number: 2005114064

PATIENT
  Age: 69 Year
  Sex: Female

DRUGS (4)
  1. CELEBREX [Suspect]
     Indication: OSTEOARTHRITIS
     Dosage: 800 MG (200 MG, 4 IN 1 D), UNKNOWN
     Dates: start: 19990501, end: 20030801
  2. ZANTAC [Concomitant]
  3. NOVASEN (ACETYLSALICYLIC ACID) [Concomitant]
  4. ZOCOR [Concomitant]

REACTIONS (1)
  - CEREBROVASCULAR ACCIDENT [None]
